FAERS Safety Report 8465163-X (Version None)
Quarter: 2012Q2

REPORT INFORMATION
  Report Type: 
  Country: None (occurrence: None)
  Receive Date: 20120626
  Receipt Date: 20120618
  Transmission Date: 20120825
  Serious: Yes (Hospitalization, Other)
  Sender: FDA-Public Use
  Company Number: PHHY2012MX053985

PATIENT
  Sex: Female

DRUGS (4)
  1. ENALAPRIL MALEATE [Concomitant]
  2. METOPROLOL TARTRATE [Concomitant]
     Dosage: 1 DF, QD
  3. ZOLEDRONOC ACID [Suspect]
     Indication: OSTEOPOROSIS
     Dosage: 5 MG/100 ML, PER YEAR
     Route: 042
  4. PRAVASTATIN [Concomitant]
     Dosage: 4 DF, QD

REACTIONS (6)
  - CHEST PAIN [None]
  - PAIN [None]
  - PRURITUS [None]
  - MYOCARDIAL INFARCTION [None]
  - LOSS OF CONSCIOUSNESS [None]
  - HERPES ZOSTER [None]
